FAERS Safety Report 17984963 (Version 2)
Quarter: 2020Q3

REPORT INFORMATION
  Report Type: Spontaneous
  Country: DE (occurrence: US)
  Receive Date: 20200706
  Receipt Date: 20200731
  Transmission Date: 20201103
  Serious: Yes (Hospitalization, Other)
  Sender: FDA-Public Use
  Company Number: DE-AMGEN-USASP2020106988

PATIENT
  Age: 49 Year
  Sex: Female
  Weight: 109 kg

DRUGS (16)
  1. CIPROBAY [CIPROFLOXACIN] [Concomitant]
     Indication: NAIL BED INFLAMMATION
     Dosage: UNK
     Dates: start: 20181011, end: 20181017
  2. MIRTAZAPIN RATIOPHARM [Concomitant]
     Indication: DEPRESSION
     Dosage: UNK
     Dates: start: 20170725, end: 20180514
  3. ORTOTON [METHOCARBAMOL] [Concomitant]
     Active Substance: METHOCARBAMOL
     Indication: METASTASES TO BONE
     Dosage: UNK
     Dates: start: 20180111, end: 20180319
  4. MELOXICAM. [Concomitant]
     Active Substance: MELOXICAM
     Indication: MUSCULOSKELETAL PAIN
     Dosage: UNK
     Dates: start: 20190514
  5. MIRTAZAPIN RATIOPHARM [Concomitant]
     Dosage: UNK
     Dates: start: 20180515
  6. VITAMIN D [COLECALCIFEROL] [Concomitant]
     Active Substance: CHOLECALCIFEROL
     Indication: DEPRESSION
     Dosage: UNK
     Dates: start: 20171130
  7. GLAUPAX [Concomitant]
     Active Substance: ACETAZOLAMIDE
     Indication: CATARACT
     Dosage: UNK
     Dates: start: 20200127, end: 20200501
  8. AMOXICILLIN. [Concomitant]
     Active Substance: AMOXICILLIN
     Dosage: UNK
     Dates: start: 20200504, end: 20200510
  9. L?THYROXIN HENNING [Concomitant]
     Active Substance: LEVOTHYROXINE SODIUM
     Indication: HYPOTHYROIDISM
     Dosage: UNK
     Dates: start: 20160718
  10. NOVALGIN (METAMIZOLE SODIUM) [Concomitant]
     Active Substance: METAMIZOLE SODIUM
     Indication: METASTASES TO BONE
     Dosage: UNK
     Dates: start: 20171130, end: 20180319
  11. ELONTRIL [Concomitant]
     Active Substance: BUPROPION HYDROCHLORIDE
     Indication: DEPRESSION
     Dosage: UNK
     Dates: start: 20180319, end: 20191005
  12. RIVAROXABAN [Concomitant]
     Active Substance: RIVAROXABAN
     Indication: HYPERCOAGULATION
     Dosage: UNK
     Dates: start: 20160804
  13. PANTOPRAZOL [PANTOPRAZOLE] [Concomitant]
     Active Substance: PANTOPRAZOLE
     Indication: PROPHYLAXIS
     Dosage: UNK
     Dates: start: 20171130
  14. PALBOCICLIB [Suspect]
     Active Substance: PALBOCICLIB
     Indication: BREAST CANCER
     Dosage: 125 MILLIGRAM, QD
     Route: 048
     Dates: start: 20171215
  15. XGEVA [Suspect]
     Active Substance: DENOSUMAB
     Indication: METASTASES TO BONE
     Dosage: UNK
     Route: 058
     Dates: start: 20160830
  16. FULVESTRANT. [Suspect]
     Active Substance: FULVESTRANT
     Indication: BREAST CANCER
     Dosage: UNK
     Route: 030
     Dates: start: 20171215

REACTIONS (2)
  - Fall [Unknown]
  - Osteonecrosis of jaw [Recovered/Resolved]

NARRATIVE: CASE EVENT DATE: 20200615
